FAERS Safety Report 5064008-8 (Version None)
Quarter: 2006Q3

REPORT INFORMATION
  Report Type: 
  Country: None (occurrence: None)
  Receive Date: 20060703
  Receipt Date: 20050929
  Transmission Date: 20061208
  Serious: No
  Sender: FDA-Public Use
  Company Number: 2005S1009752

PATIENT
  Age: 39 Year
  Sex: Female

DRUGS (10)
  1. CLOZAPINE [Suspect]
     Dosage: 200 MG;HS;PO
     Route: 048
     Dates: start: 20050901
  2. AMLODIPINE BESYLATE [Concomitant]
  3. PROPRANOLOL [Concomitant]
  4. ACETYLSALICYLIC ACID SRT [Concomitant]
  5. VITAMINS NOS [Concomitant]
  6. GEMFIBROZIL [Concomitant]
  7. BUSPIRONE HCL [Concomitant]
  8. ARIPIPRAZOLE [Concomitant]
  9. VALPROATE SODIUM [Concomitant]
  10. CITALOPRAM HYDROBROMIDE [Concomitant]

REACTIONS (1)
  - GRANULOCYTOPENIA [None]
